FAERS Safety Report 17621076 (Version 1)
Quarter: 2020Q2

REPORT INFORMATION
  Report Type: Report from Study
  Country: ES (occurrence: ES)
  Receive Date: 20200403
  Receipt Date: 20200403
  Transmission Date: 20200713
  Serious: Yes (Hospitalization)
  Sender: FDA-Public Use
  Company Number: ES-TEVA-2020-ES-1217233

PATIENT
  Age: 46 Year
  Sex: Female

DRUGS (6)
  1. OMEPRAZOL (2141A) [Concomitant]
     Active Substance: OMEPRAZOLE
     Indication: PROPHYLAXIS
     Route: 048
     Dates: start: 20140121
  2. OLANZAPINA (2770A) [Concomitant]
     Active Substance: OLANZAPINE
     Route: 048
     Dates: start: 20170430, end: 20171111
  3. IBUPROFENO (1769A) [Suspect]
     Active Substance: IBUPROFEN
     Indication: BACK PAIN
     Dosage: 4 DOSAGEFORM
     Route: 048
     Dates: start: 201711, end: 20171110
  4. FUROSEMIDA (1615A) [Interacting]
     Active Substance: FUROSEMIDE
     Indication: HEPATIC CIRRHOSIS
     Route: 048
     Dates: start: 20170207, end: 20171111
  5. ESPIRONOLACTONA (326A) [Interacting]
     Active Substance: SPIRONOLACTONE
     Indication: HEPATIC CIRRHOSIS
     Dosage: 200 MILLIGRAM
     Route: 048
     Dates: start: 20140121, end: 20171011
  6. TIAMINA (57A) [Concomitant]
     Indication: ALCOHOLISM
     Route: 048
     Dates: start: 20170215

REACTIONS (3)
  - Hyperkalaemia [Recovered/Resolved]
  - Drug interaction [Unknown]
  - Acute kidney injury [Recovered/Resolved]

NARRATIVE: CASE EVENT DATE: 20171111
